FAERS Safety Report 10183008 (Version 1)
Quarter: 2014Q2

REPORT INFORMATION
  Report Type: Spontaneous
  Country: CA (occurrence: US)
  Receive Date: 20140520
  Receipt Date: 20140520
  Transmission Date: 20141212
  Serious: Yes (Other)
  Sender: FDA-Public Use
  Company Number: CA-NOVOPROD-410067

PATIENT
  Age: 60 Year
  Sex: Male

DRUGS (2)
  1. NOVOLOG FLEXPEN [Suspect]
     Indication: TYPE 2 DIABETES MELLITUS
     Dosage: 18 UNITS THREE TIMES DAILY BEFORE MEALS
     Route: 058
  2. LANTUS [Concomitant]
     Indication: TYPE 2 DIABETES MELLITUS
     Dosage: 40UNITS DAILY AT BEDTIME
     Route: 058

REACTIONS (1)
  - Renal failure [Not Recovered/Not Resolved]
